FAERS Safety Report 7711656-X (Version None)
Quarter: 2011Q3

REPORT INFORMATION
  Report Type: 
  Country: None (occurrence: None)
  Receive Date: 20110826
  Receipt Date: 20110711
  Transmission Date: 20111222
  Serious: No
  Sender: FDA-Public Use
  Company Number: US-BRISTOL-MYERS SQUIBB COMPANY-15892805

PATIENT
  Sex: Female

DRUGS (2)
  1. METFORMIN HCL [Concomitant]
  2. ONGLYZA [Suspect]

REACTIONS (1)
  - FLUSHING [None]
